FAERS Safety Report 18978973 (Version 1)
Quarter: 2021Q1

REPORT INFORMATION
  Report Type: Spontaneous
  Country: IN (occurrence: IN)
  Receive Date: 20210308
  Receipt Date: 20210308
  Transmission Date: 20210420
  Serious: Yes (Hospitalization, Other)
  Sender: FDA-Public Use
  Company Number: IN-EPICPHARMA-IN-2021EPCLIT00212

PATIENT
  Age: 5 Year
  Sex: Male

DRUGS (4)
  1. PHENYTOIN. [Suspect]
     Active Substance: PHENYTOIN
     Indication: PRODUCT USED FOR UNKNOWN INDICATION
     Dosage: 20 TABLETS
     Route: 048
  2. MIDAZOLAM. [Interacting]
     Active Substance: MIDAZOLAM
     Indication: DYSTONIA
     Route: 042
  3. LEVODOPA [Interacting]
     Active Substance: LEVODOPA
     Indication: DYSTONIA
     Route: 042
  4. TRIHEXYPHENIDYL [Interacting]
     Active Substance: TRIHEXYPHENIDYL
     Indication: DYSTONIA
     Route: 042

REACTIONS (4)
  - Accidental overdose [Unknown]
  - Dystonia [Recovered/Resolved]
  - Accidental exposure to product by child [Unknown]
  - Toxicity to various agents [Recovered/Resolved]
